FAERS Safety Report 9217868 (Version 2)
Quarter: 2013Q2

REPORT INFORMATION
  Report Type: Spontaneous
  Country: CA (occurrence: CA)
  Receive Date: 20130408
  Receipt Date: 20130531
  Transmission Date: 20140414
  Serious: Yes (Hospitalization, Other)
  Sender: FDA-Public Use
  Company Number: CA-AMGEN-CANSP2013023667

PATIENT
  Age: 85 Year
  Sex: Female
  Weight: 60 kg

DRUGS (1)
  1. PROLIA [Suspect]
     Indication: OSTEOPOROSIS POSTMENOPAUSAL
     Dosage: 60 MG, UNK
     Dates: start: 20121024

REACTIONS (10)
  - Cardiac disorder [Unknown]
  - Gastrointestinal disorder [Unknown]
  - Paralysis [Unknown]
  - Hypersensitivity [Unknown]
  - Dyspnoea [Unknown]
  - Arthritis [Unknown]
  - Pain [Unknown]
  - Headache [Unknown]
  - Proctalgia [Unknown]
  - Pain in extremity [Unknown]
